FAERS Safety Report 5724744-4 (Version None)
Quarter: 2008Q2

REPORT INFORMATION
  Report Type: 
  Country: None (occurrence: None)
  Receive Date: 20080501
  Receipt Date: 20080422
  Transmission Date: 20081010
  Serious: Yes (Hospitalization)
  Sender: FDA-Public Use
  Company Number: PHHO2008FI04440

PATIENT
  Age: 73 Year
  Sex: Male
  Weight: 74.5 kg

DRUGS (2)
  1. NILOTINIB VS IMATINIB [Suspect]
     Indication: CHRONIC MYELOID LEUKAEMIA
     Dosage: 400 MG, QD
     Route: 048
     Dates: start: 20080325, end: 20080406
  2. HYDREA [Concomitant]
     Indication: CHRONIC MYELOID LEUKAEMIA

REACTIONS (5)
  - DIARRHOEA [None]
  - INFECTION [None]
  - LEUKOPENIA [None]
  - NEUTROPHIL COUNT DECREASED [None]
  - PYREXIA [None]
